FAERS Safety Report 12190383 (Version 1)
Quarter: 2016Q1

REPORT INFORMATION
  Report Type: Spontaneous
  Country: US (occurrence: None)
  Receive Date: 20160317
  Receipt Date: 20160317
  Transmission Date: 20160526
  Serious: Yes (Disabling)
  Sender: FDA-Public Use
  Company Number: None

PATIENT
  Age: 32 Year
  Sex: Male
  Weight: 77.11 kg

DRUGS (3)
  1. ZINC PICOLINATE [Concomitant]
     Active Substance: ZINC PICOLINATE
  2. CETIRIZINE [Suspect]
     Active Substance: CETIRIZINE HYDROCHLORIDE
     Indication: MULTIPLE ALLERGIES
  3. CETIRIZINE [Suspect]
     Active Substance: CETIRIZINE HYDROCHLORIDE
     Indication: PRURITUS

REACTIONS (8)
  - Urticaria [None]
  - Skin swelling [None]
  - Insomnia [None]
  - Drug dependence [None]
  - Pruritus [None]
  - Drug withdrawal syndrome [None]
  - Skin burning sensation [None]
  - Dyspnoea [None]

NARRATIVE: CASE EVENT DATE: 20160201
